FAERS Safety Report 13093660 (Version 2)
Quarter: 2017Q1

REPORT INFORMATION
  Report Type: Report from Study
  Country: IL (occurrence: IL)
  Receive Date: 20170106
  Receipt Date: 20170222
  Transmission Date: 20170428
  Serious: Yes (Death, Hospitalization)
  Sender: FDA-Public Use
  Company Number: IL-IPSEN BIOPHARMACEUTICALS, INC.-2017-00089

PATIENT
  Sex: Female

DRUGS (1)
  1. SOMATULINE [Suspect]
     Active Substance: LANREOTIDE ACETATE
     Indication: ACROMEGALY
     Dosage: NOT REPORTED
     Route: 065

REACTIONS (2)
  - Asthenia [Unknown]
  - Disease progression [Fatal]

NARRATIVE: CASE EVENT DATE: 201612
